FAERS Safety Report 8244881-2 (Version None)
Quarter: 2012Q1

REPORT INFORMATION
  Report Type: 
  Country: None (occurrence: None)
  Receive Date: 20120329
  Receipt Date: 20110801
  Transmission Date: 20120608
  Serious: No
  Sender: FDA-Public Use
  Company Number: US-MYLANLABS-2011S1015900

PATIENT
  Sex: Male

DRUGS (7)
  1. LIDODERM [Concomitant]
  2. ZOLPIDEM [Concomitant]
  3. BENADRYL [Concomitant]
  4. FENTANYL-100 [Suspect]
     Indication: PAIN
     Dosage: CHANGED Q48H
     Route: 062
  5. FENTANYL-100 [Suspect]
     Dosage: CHANGED Q48H
     Route: 062
  6. BUFFERIN [Concomitant]
  7. OXYCODONE HCL [Concomitant]

REACTIONS (3)
  - PAIN [None]
  - DRUG EFFECT DECREASED [None]
  - INCORRECT DRUG ADMINISTRATION DURATION [None]
